FAERS Safety Report 14853422 (Version 3)
Quarter: 2018Q4

REPORT INFORMATION
  Report Type: Spontaneous
  Country: US (occurrence: US)
  Receive Date: 20180507
  Receipt Date: 20181121
  Transmission Date: 20190204
  Serious: No
  Sender: FDA-Public Use
  Company Number: US-PFIZER INC-2017532238

PATIENT
  Age: 35 Year
  Sex: Female

DRUGS (10)
  1. DOCETAXEL. [Suspect]
     Active Substance: DOCETAXEL
     Indication: INVASIVE DUCTAL BREAST CARCINOMA
     Dosage: 124 MG, CYCLIC (04 CYCLES), EVERY 3 WEEKS
     Dates: start: 20110216, end: 20110628
  2. NEOSAR [Concomitant]
     Active Substance: CYCLOPHOSPHAMIDE
     Indication: CHEMOTHERAPY
     Dosage: UNK
  3. DOCETAXEL SANOFI-AVENTIS [Suspect]
     Active Substance: DOCETAXEL
     Indication: INVASIVE DUCTAL BREAST CARCINOMA
     Dosage: 124 MG, CYCLIC (04 CYCLES), EVERY 3 WEEKS
     Dates: start: 20110216, end: 20110628
  4. ADRIAMYCIN [Concomitant]
     Active Substance: DOXORUBICIN HYDROCHLORIDE
     Indication: CHEMOTHERAPY
     Dosage: 83 MG, UNK
     Dates: start: 20110216, end: 20110628
  5. CELEBREX [Concomitant]
     Active Substance: CELECOXIB
     Dosage: UNK
  6. CYTOXAN [Concomitant]
     Active Substance: CYCLOPHOSPHAMIDE
     Indication: CHEMOTHERAPY
     Dosage: 828 MG, UNK
     Dates: start: 20110216, end: 20110628
  7. NORCO [Concomitant]
     Active Substance: ACETAMINOPHEN\HYDROCODONE BITARTRATE
     Dosage: UNK
  8. DOCEFREZ [Suspect]
     Active Substance: DOCETAXEL ANHYDROUS
     Indication: INVASIVE DUCTAL BREAST CARCINOMA
     Dosage: 124 MG, CYCLIC (04 CYCLES), EVERY 3 WEEKS
     Dates: start: 20110216, end: 20110628
  9. DECADRON [Concomitant]
     Active Substance: DEXAMETHASONE
     Dosage: UNK
  10. DOXIL [Concomitant]
     Active Substance: DOXORUBICIN HYDROCHLORIDE
     Indication: CHEMOTHERAPY
     Dosage: UNK

REACTIONS (6)
  - Depression [Unknown]
  - Hair texture abnormal [Not Recovered/Not Resolved]
  - Alopecia [Not Recovered/Not Resolved]
  - Hair disorder [Not Recovered/Not Resolved]
  - Hair colour changes [Not Recovered/Not Resolved]
  - Depressed mood [Unknown]

NARRATIVE: CASE EVENT DATE: 20111228
